FAERS Safety Report 5591029-9 (Version None)
Quarter: 2008Q1

REPORT INFORMATION
  Report Type: 
  Country: None (occurrence: None)
  Receive Date: 20080115
  Receipt Date: 20080104
  Transmission Date: 20080703
  Serious: Yes (Hospitalization, Disabling, Other)
  Sender: FDA-Public Use
  Company Number: PHMT2007CA01292

PATIENT
  Age: 83 Year
  Sex: Female

DRUGS (1)
  1. SANDOSTATIN LAR [Suspect]
     Indication: ANGIODYSPLASIA
     Dosage: 30 MG EVERY MONTH
     Route: 030
     Dates: start: 20050620

REACTIONS (5)
  - CARDIAC DISORDER [None]
  - DEAFNESS [None]
  - HYPERTENSION [None]
  - RALES [None]
  - SECRETION DISCHARGE [None]
